FAERS Safety Report 14822332 (Version 3)
Quarter: 2018Q2

REPORT INFORMATION
  Report Type: Report from Study
  Country: US (occurrence: US)
  Receive Date: 20180427
  Receipt Date: 20180616
  Transmission Date: 20180711
  Serious: No
  Sender: FDA-Public Use
  Company Number: PHEH2018US016245

PATIENT
  Sex: Female

DRUGS (1)
  1. COSENTYX [Suspect]
     Active Substance: SECUKINUMAB
     Indication: PRODUCT USED FOR UNKNOWN INDICATION
     Dosage: 300 MG, QMO
     Route: 058

REACTIONS (7)
  - Psoriasis [Unknown]
  - Weight decreased [Unknown]
  - Dry skin [Unknown]
  - Blood glucose increased [Unknown]
  - Skin fissures [Unknown]
  - Pain [Unknown]
  - Arthritis [Unknown]
